FAERS Safety Report 6125897-9 (Version None)
Quarter: 2009Q1

REPORT INFORMATION
  Report Type: 
  Country: None (occurrence: None)
  Receive Date: 20090320
  Receipt Date: 20090317
  Transmission Date: 20090719
  Serious: Yes (Hospitalization, Other)
  Sender: FDA-Public Use
  Company Number: US-BRISTOL-MYERS SQUIBB COMPANY-14550909

PATIENT

DRUGS (1)
  1. ABILIFY [Suspect]

REACTIONS (2)
  - DRUG PRESCRIBING ERROR [None]
  - GRAND MAL CONVULSION [None]
